FAERS Safety Report 9243205 (Version 2)
Quarter: 2013Q2

REPORT INFORMATION
  Report Type: Spontaneous
  Country: GB (occurrence: GB)
  Receive Date: 20130419
  Receipt Date: 20130429
  Transmission Date: 20140414
  Serious: Yes (Death, Other)
  Sender: FDA-Public Use
  Company Number: GB-B.I. PHARMACEUTICALS,INC./RIDGEFIELD-2013-UK-00932UK

PATIENT
  Age: 50 Year
  Sex: Female
  Weight: 82 kg

DRUGS (9)
  1. PRADAXA [Suspect]
  2. FUROSEMIDE [Concomitant]
     Indication: OEDEMA
     Dosage: 40 MG
     Route: 048
  3. LANSOPRAZOLE [Concomitant]
     Indication: GASTRITIS
     Dosage: 30 MG
     Route: 048
  4. CETIRIZINE [Concomitant]
     Dosage: 10 MG
     Route: 048
  5. PARACETAMOL [Concomitant]
     Indication: PAIN
     Route: 048
  6. BISOPROLOL [Concomitant]
     Indication: BLOOD PRESSURE INCREASED
     Dosage: 2.5 MG
     Route: 048
  7. MONOMIL MR [Concomitant]
     Indication: BLOOD PRESSURE INCREASED
     Dosage: 80 G
     Route: 048
  8. SERETIDE [Concomitant]
     Indication: ASTHMA
     Route: 055
  9. VENTOLIN EVOHALER [Concomitant]
     Route: 055

REACTIONS (3)
  - Haemorrhage intracranial [Fatal]
  - Syncope [Unknown]
  - Off label use [Unknown]
